FAERS Safety Report 19208658 (Version 3)
Quarter: 2022Q4

REPORT INFORMATION
  Report Type: Spontaneous
  Country: IT (occurrence: IT)
  Receive Date: 20210503
  Receipt Date: 20221024
  Transmission Date: 20230112
  Serious: Yes (Hospitalization, Other)
  Sender: FDA-Public Use
  Company Number: IT-AMGEN-ITASP2021064431

PATIENT

DRUGS (10)
  1. PROLIA [Suspect]
     Active Substance: DENOSUMAB
     Indication: Osteoporosis
     Dosage: UNK
     Route: 065
  2. PROLIA [Suspect]
     Active Substance: DENOSUMAB
     Indication: Osteopenia
  3. PROLIA [Suspect]
     Active Substance: DENOSUMAB
     Indication: Off label use
  4. CINACALCET HYDROCHLORIDE [Suspect]
     Active Substance: CINACALCET HYDROCHLORIDE
     Indication: Product used for unknown indication
     Route: 065
  5. CHOLECALCIFEROL [Concomitant]
     Active Substance: CHOLECALCIFEROL
  6. CALCIUM [Concomitant]
     Active Substance: CALCIUM
  7. CYCLOSPORINE [Concomitant]
     Active Substance: CYCLOSPORINE
  8. TACROLIMUS [Concomitant]
     Active Substance: TACROLIMUS
  9. MYCOPHENOLIC ACID [Concomitant]
     Active Substance: MYCOPHENOLIC ACID
  10. AZATHIOPRINE [Concomitant]
     Active Substance: AZATHIOPRINE

REACTIONS (8)
  - Sepsis [Unknown]
  - Pathological fracture [Unknown]
  - Blood parathyroid hormone increased [Unknown]
  - Blood alkaline phosphatase increased [Unknown]
  - Osteoporosis [Unknown]
  - Off label use [Unknown]
  - Urinary tract infection [Unknown]
  - Blood calcium decreased [Unknown]
